FAERS Safety Report 5743868-9 (Version None)
Quarter: 2008Q2

REPORT INFORMATION
  Report Type: 
  Country: None (occurrence: None)
  Receive Date: 20080520
  Receipt Date: 20080512
  Transmission Date: 20081010
  Serious: Yes (Life-Threatening, Hospitalization)
  Sender: FDA-Public Use
  Company Number: FR-ELI_LILLY_AND_COMPANY-FR200805002002

PATIENT
  Sex: Male

DRUGS (3)
  1. ALIMTA [Suspect]
     Indication: LUNG NEOPLASM MALIGNANT
     Dosage: 500 MG/M2 OR 850MG BY INFUSION, UNKNOWN
     Route: 042
     Dates: start: 20070601, end: 20071213
  2. OLMETEC [Concomitant]
     Dosage: 20 MG, DAILY (1/D)
     Route: 048
     Dates: start: 19970101, end: 20071219
  3. ALLOPURINOL [Concomitant]
     Dosage: 200 MG, DAILY (1/D)
     Route: 048
     Dates: start: 19970101, end: 20071219

REACTIONS (8)
  - BACTERAEMIA [None]
  - CONFUSIONAL STATE [None]
  - DIARRHOEA [None]
  - FALL [None]
  - GENERAL PHYSICAL HEALTH DETERIORATION [None]
  - NEUTROPENIC SEPSIS [None]
  - PANCYTOPENIA [None]
  - PNEUMONIA [None]
